FAERS Safety Report 4330300-5 (Version None)
Quarter: 2004Q1

REPORT INFORMATION
  Report Type: 
  Country: None (occurrence: None)
  Receive Date: 20040329
  Receipt Date: 20040316
  Transmission Date: 20041129
  Serious: Yes (Hospitalization, Other)
  Sender: FDA-Public Use
  Company Number: 2004014702

PATIENT
  Age: 56 Year
  Sex: Male

DRUGS (4)
  1. ZITHROMAX [Suspect]
     Indication: UPPER RESPIRATORY TRACT INFLAMMATION
     Dosage: 500 MG (DAILY), ORAL
     Route: 048
     Dates: start: 20040228, end: 20040301
  2. ACETAMINOPHEN [Suspect]
     Indication: UPPER RESPIRATORY TRACT INFLAMMATION
     Dosage: 400 MG (BID), ORAL
     Route: 048
     Dates: start: 20040228, end: 20040301
  3. SERRAPEPTASE (SERRAPEPTASE) [Concomitant]
  4. CARBOCISTEINE (CARBOCISTEINE) [Concomitant]

REACTIONS (8)
  - COMA HEPATIC [None]
  - DEPRESSED LEVEL OF CONSCIOUSNESS [None]
  - HEPATIC ENCEPHALOPATHY [None]
  - HEPATITIS ACUTE [None]
  - LYMPHOCYTE STIMULATION TEST POSITIVE [None]
  - MALAISE [None]
  - PROTHROMBIN TIME PROLONGED [None]
  - PYREXIA [None]
